FAERS Safety Report 17501633 (Version 4)
Quarter: 2021Q2

REPORT INFORMATION
  Report Type: Spontaneous
  Country: US (occurrence: US)
  Receive Date: 20200305
  Receipt Date: 20210607
  Transmission Date: 20210716
  Serious: No
  Sender: FDA-Public Use
  Company Number: US-PFIZER INC-2020096375

PATIENT
  Age: 71 Year
  Sex: Female

DRUGS (1)
  1. METHOTREXATE SODIUM. [Suspect]
     Active Substance: METHOTREXATE SODIUM
     Dosage: UNK
     Dates: end: 2012

REACTIONS (3)
  - Drug hypersensitivity [Unknown]
  - Lung disorder [Unknown]
  - Drug intolerance [Unknown]
